FAERS Safety Report 20291354 (Version 1)
Quarter: 2022Q1

REPORT INFORMATION
  Report Type: Spontaneous
  Country: US (occurrence: None)
  Receive Date: 20220103
  Receipt Date: 20220103
  Transmission Date: 20220424
  Serious: Yes (Hospitalization)
  Sender: FDA-Public Use
  Company Number: None

PATIENT
  Sex: Male

DRUGS (2)
  1. KESIMPTA [Suspect]
     Active Substance: OFATUMUMAB
     Indication: Multiple sclerosis
     Dosage: OTHER QUANTITY : 20 MG / 0.4ML;?
     Route: 058
     Dates: start: 20210625
  2. MULTIVIT/FL CHW [Concomitant]

REACTIONS (2)
  - Therapy interrupted [None]
  - Infection [None]
